FAERS Safety Report 5447051-6 (Version None)
Quarter: 2007Q3

REPORT INFORMATION
  Report Type: 
  Country: None (occurrence: None)
  Receive Date: 20070801
  Receipt Date: 20070606
  Transmission Date: 20080115
  Serious: Yes (Other)
  Sender: FDA-Public Use
  Company Number: 157580USA

PATIENT

DRUGS (1)
  1. SALBUTAMOL SULFATE INHALATION, 0.09 MG (SALBUTAMOL) [Suspect]
     Indication: ASTHMA

REACTIONS (3)
  - DRUG INEFFECTIVE [None]
  - DYSPNOEA [None]
  - LIP BLISTER [None]
